FAERS Safety Report 16367413 (Version 4)
Quarter: 2020Q1

REPORT INFORMATION
  Report Type: Spontaneous
  Country: US (occurrence: US)
  Receive Date: 20190529
  Receipt Date: 20200225
  Transmission Date: 20200409
  Serious: Yes (Other)
  Sender: FDA-Public Use
  Company Number: US-PFIZER INC-2019223848

PATIENT
  Age: 54 Year
  Sex: Male
  Weight: 145 kg

DRUGS (1)
  1. LYRICA [Suspect]
     Active Substance: PREGABALIN
     Indication: NEUROPATHY PERIPHERAL
     Dosage: 200 MG, 3X/DAY
     Route: 048
     Dates: start: 2018

REACTIONS (5)
  - Diabetic neuropathy [Unknown]
  - Cataract [Recovered/Resolved]
  - Product dispensing issue [Unknown]
  - Neuropathy peripheral [Unknown]
  - Dysgraphia [Unknown]
